FAERS Safety Report 19462928 (Version 1)
Quarter: 2021Q2

REPORT INFORMATION
  Report Type: Spontaneous
  Country: CH (occurrence: CH)
  Receive Date: 20210625
  Receipt Date: 20210625
  Transmission Date: 20210717
  Serious: Yes (Hospitalization)
  Sender: FDA-Public Use
  Company Number: CH-ASTRAZENECA-2018SE95411

PATIENT
  Age: 85 Year
  Sex: Male

DRUGS (11)
  1. BECOZYME?C FORTE [Concomitant]
     Dates: end: 20180610
  2. ACIDUM FOLICUM [Concomitant]
     Active Substance: FOLIC ACID
     Dates: end: 20180610
  3. CALCIPARINE [Concomitant]
     Active Substance: HEPARIN CALCIUM
  4. CALCIMAGON D3 [Concomitant]
     Active Substance: CALCIUM\CHOLECALCIFEROL
  5. ROCALTROL [Suspect]
     Active Substance: CALCITRIOL
     Route: 048
     Dates: start: 20180501
  6. NEPHROTRANS [Concomitant]
     Active Substance: SODIUM BICARBONATE
  7. BENERVA [Concomitant]
     Active Substance: THIAMINE HYDROCHLORIDE
     Dates: end: 20180610
  8. ANXIOLIT [Concomitant]
     Active Substance: OXAZEPAM
     Dosage: AS NECESSARY
  9. NEXIUM [Suspect]
     Active Substance: ESOMEPRAZOLE MAGNESIUM
     Route: 048
     Dates: start: 20180501
  10. LASIX [Suspect]
     Active Substance: FUROSEMIDE
     Route: 041
     Dates: start: 20180501
  11. IMPORTAL [Concomitant]
     Active Substance: LACTITOL

REACTIONS (1)
  - Renal impairment [Not Recovered/Not Resolved]

NARRATIVE: CASE EVENT DATE: 20180510
